FAERS Safety Report 7581969-3 (Version None)
Quarter: 2011Q2

REPORT INFORMATION
  Report Type: 
  Country: None (occurrence: None)
  Receive Date: 20110630
  Receipt Date: 20110621
  Transmission Date: 20111010
  Serious: Yes (Hospitalization)
  Sender: FDA-Public Use
  Company Number: US-BIOGENIDEC-2011BI020559

PATIENT
  Age: 38 Year
  Sex: Female

DRUGS (14)
  1. FLUTICASONE PROPIONATE [Concomitant]
     Route: 045
  2. TYSABRI [Suspect]
     Indication: MULTIPLE SCLEROSIS
     Route: 042
     Dates: start: 20100924
  3. ADVIL LIQUI-GELS [Concomitant]
     Dates: end: 20110301
  4. DALFAMPRIDINE [Concomitant]
     Route: 048
  5. ACETAMINOPHEN [Concomitant]
     Dates: end: 20110301
  6. DESVENLAFAXINE SUCCINATE [Concomitant]
     Route: 048
  7. DICLOFENAC SODIUM [Concomitant]
     Route: 048
  8. TOLTERODINE TARTRATE [Concomitant]
     Route: 048
  9. PANTOPRAZOLE SODIUM [Concomitant]
     Dates: end: 20110301
  10. CALCIUM CITRATE [Concomitant]
  11. VITAMIN D [Concomitant]
  12. VARENICLINE [Concomitant]
     Route: 048
  13. PANTOPRAZOLE [Concomitant]
     Route: 048
  14. ROSUVASTATIN [Concomitant]
     Route: 048

REACTIONS (4)
  - MULTIPLE SCLEROSIS RELAPSE [None]
  - UHTHOFF'S PHENOMENON [None]
  - OPTIC ATROPHY [None]
  - OPTIC NEURITIS [None]
